FAERS Safety Report 7473247-8 (Version None)
Quarter: 2011Q2

REPORT INFORMATION
  Report Type: 
  Country: None (occurrence: None)
  Receive Date: 20110511
  Receipt Date: 20110506
  Transmission Date: 20111010
  Serious: Yes (Hospitalization)
  Sender: FDA-Public Use
  Company Number: B0718223A

PATIENT
  Sex: Female

DRUGS (1)
  1. CEFUROXIME AXETIL [Suspect]
     Indication: RESPIRATORY TRACT INFECTION
     Route: 048
     Dates: start: 20100101, end: 20100101

REACTIONS (5)
  - MACULE [None]
  - DERMATITIS [None]
  - ANAPHYLACTIC REACTION [None]
  - PRURITUS [None]
  - PAPULE [None]
